FAERS Safety Report 9348513 (Version 1)
Quarter: 2013Q2

REPORT INFORMATION
  Report Type: Spontaneous
  Country: US (occurrence: None)
  Receive Date: 20130613
  Receipt Date: 20130613
  Transmission Date: 20140414
  Serious: Yes (Other)
  Sender: FDA-Public Use
  Company Number: None

PATIENT
  Age: 75 Year
  Sex: Female
  Weight: 63.96 kg

DRUGS (1)
  1. RESTASIS [Suspect]
     Indication: DRY EYE
     Dates: start: 20130516, end: 20130528

REACTIONS (5)
  - Vision blurred [None]
  - Sensation of foreign body [None]
  - Pruritus [None]
  - Lacrimation increased [None]
  - Ocular hyperaemia [None]
